FAERS Safety Report 12050697 (Version 1)
Quarter: 2016Q1

REPORT INFORMATION
  Report Type: Spontaneous
  Country: CA (occurrence: CA)
  Receive Date: 20160209
  Receipt Date: 20160209
  Transmission Date: 20160526
  Serious: Yes (Death, Hospitalization, Disabling)
  Sender: FDA-Public Use
  Company Number: CA-SA-2016SA021325

PATIENT
  Age: 88 Year
  Sex: Female
  Weight: 61 kg

DRUGS (14)
  1. INVESTIGATIONAL DRUG [Suspect]
     Active Substance: INVESTIGATIONAL PRODUCT
     Indication: CARDIAC FAILURE CONGESTIVE
     Route: 048
  2. BISOPROLOL [Concomitant]
     Active Substance: BISOPROLOL
  3. INSULIN [Concomitant]
     Active Substance: INSULIN NOS
  4. WARFARIN [Concomitant]
     Active Substance: WARFARIN
  5. AMLODIPINE [Suspect]
     Active Substance: AMLODIPINE BESYLATE
     Route: 048
  6. TRAVATAN Z [Concomitant]
     Active Substance: TRAVOPROST
     Dosage: SOLUTION OPHTHALMIC
  7. ATORVASTATIN CALCIUM. [Suspect]
     Active Substance: ATORVASTATIN CALCIUM
     Route: 048
  8. COSOPT [Concomitant]
     Active Substance: DORZOLAMIDE HYDROCHLORIDE\TIMOLOL MALEATE
     Dosage: SOLUTION OPHTHALMIC
  9. IRON [Concomitant]
     Active Substance: IRON
  10. FUROSEMIDE. [Suspect]
     Active Substance: FUROSEMIDE
     Indication: CARDIAC FAILURE CONGESTIVE
     Route: 048
  11. CALCIUM [Concomitant]
     Active Substance: CALCIUM
  12. TRIAMCINOLONE [Concomitant]
     Active Substance: TRIAMCINOLONE
  13. PANTOPRAZOLE [Suspect]
     Active Substance: PANTOPRAZOLE SODIUM
     Route: 048
  14. LIPITOR [Concomitant]
     Active Substance: ATORVASTATIN CALCIUM

REACTIONS (16)
  - Chills [Recovering/Resolving]
  - Dysgeusia [Recovering/Resolving]
  - Headache [Recovering/Resolving]
  - Cardiac failure congestive [Fatal]
  - Myocardial infarction [Fatal]
  - Syncope [Fatal]
  - Fatigue [Recovering/Resolving]
  - Feeling cold [Recovering/Resolving]
  - Nausea [Recovering/Resolving]
  - Chest discomfort [Recovering/Resolving]
  - Gamma-glutamyltransferase increased [Recovering/Resolving]
  - Rash macular [Recovering/Resolving]
  - Cardiac arrest [Fatal]
  - Burning sensation [Recovering/Resolving]
  - Decreased appetite [Recovering/Resolving]
  - Paraesthesia [Recovering/Resolving]
